FAERS Safety Report 21774359 (Version 3)
Quarter: 2023Q1

REPORT INFORMATION
  Report Type: Spontaneous
  Country: AT (occurrence: AT)
  Receive Date: 20221224
  Receipt Date: 20230130
  Transmission Date: 20230418
  Serious: Yes (Hospitalization, Other)
  Sender: FDA-Public Use
  Company Number: AT-ROCHE-3183933

PATIENT
  Age: 48 Year
  Sex: Female
  Weight: 58 kg

DRUGS (51)
  1. LAPATINIB [Suspect]
     Active Substance: LAPATINIB
     Indication: HER2 positive breast cancer
     Dosage: 250MG (MOST RECENT DOSE PRIOR TO THE EVENT: 28 DEC 2020 AND 09 JAN 2021)
     Route: 048
     Dates: start: 20200923, end: 20201228
  2. LAPATINIB [Suspect]
     Active Substance: LAPATINIB
     Dosage: 250 MG, EVERY 0.25 DAY
     Route: 048
     Dates: start: 20210109
  3. CAPECITABINE [Suspect]
     Active Substance: CAPECITABINE
     Indication: HER2 positive breast cancer
     Dosage: 500 MG (MOST RECENT DOSE PRIOR TO THE EVENT: 20 DEC 2020 AND 09 JAN 2021)
     Route: 048
     Dates: start: 20200923, end: 20201220
  4. CAPECITABINE [Suspect]
     Active Substance: CAPECITABINE
     Dosage: 500 MG, EVERY 4 DAYS (MOST RECENT DOSE PRIOR TO AE 09 DEC 2021)
     Route: 065
     Dates: start: 20210109
  5. PACLITAXEL [Suspect]
     Active Substance: PACLITAXEL
     Indication: HER2 positive breast cancer
     Dosage: 260 MG/M2, Q3W (MOST RECENT DOSE: 12 SEP 2019)
     Route: 042
     Dates: start: 20190724
  6. TRASTUZUMAB [Suspect]
     Active Substance: TRASTUZUMAB
     Indication: HER2 positive breast cancer
     Dosage: 6 MG/KG, Q3W. (MOST RECENT DOSE: 12 SEP 2019)
     Route: 042
     Dates: start: 20190724
  7. ADO-TRASTUZUMAB EMTANSINE [Suspect]
     Active Substance: ADO-TRASTUZUMAB EMTANSINE
     Indication: HER2 positive breast cancer
     Dosage: 3.6 MG/KG, Q3W
     Route: 042
     Dates: start: 20191014, end: 20200518
  8. ADO-TRASTUZUMAB EMTANSINE [Suspect]
     Active Substance: ADO-TRASTUZUMAB EMTANSINE
     Dosage: 2.88 MG/KG, Q3W, (MOST RECENT DOSE PRIOR TO THE EVENT: 03 JUL 2020)
     Route: 042
     Dates: start: 20200703
  9. PERTUZUMAB [Suspect]
     Active Substance: PERTUZUMAB
     Indication: HER2 positive breast cancer
     Dosage: 420 MG, Q3W, (MOST RECENT DOSE: 12 SEP 2019)
     Route: 042
     Dates: start: 20190724
  10. DRONABINOL [Concomitant]
     Active Substance: DRONABINOL
     Indication: Product used for unknown indication
     Dosage: 2.5 %
     Route: 065
     Dates: start: 20190716, end: 20210804
  11. DRONABINOL [Concomitant]
     Active Substance: DRONABINOL
     Dosage: 2.5 %, ONGOING = CHECKED
     Route: 065
     Dates: start: 20210705
  12. ZOFRAN [Concomitant]
     Active Substance: ONDANSETRON HYDROCHLORIDE
     Indication: Product used for unknown indication
     Dosage: 8 MG
     Route: 065
     Dates: start: 20190701
  13. ZOFRAN [Concomitant]
     Active Substance: ONDANSETRON HYDROCHLORIDE
     Dosage: 8 MG
     Route: 065
     Dates: start: 20190704, end: 20200703
  14. ZOFRAN [Concomitant]
     Active Substance: ONDANSETRON HYDROCHLORIDE
     Dosage: 8 MG (EVERY 0.5 DAY)
     Route: 065
     Dates: start: 20190705, end: 20190914
  15. ZOFRAN [Concomitant]
     Active Substance: ONDANSETRON HYDROCHLORIDE
     Dosage: 4 MG, QD
     Route: 065
     Dates: start: 20210302, end: 20210302
  16. ZOFRAN [Concomitant]
     Active Substance: ONDANSETRON HYDROCHLORIDE
     Dosage: 8 MG, Q3W
     Route: 065
     Dates: start: 20220110
  17. DEXAMETHASONE [Concomitant]
     Active Substance: DEXAMETHASONE
     Indication: Product used for unknown indication
     Dosage: 8 MG
     Route: 065
     Dates: start: 20190704, end: 20190912
  18. DEXAMETHASONE [Concomitant]
     Active Substance: DEXAMETHASONE
     Dosage: 8 MG
     Route: 065
     Dates: start: 20190705, end: 20190914
  19. DEXAMETHASONE [Concomitant]
     Active Substance: DEXAMETHASONE
     Dosage: 6 MG, QD
     Route: 065
     Dates: start: 20210302, end: 20210304
  20. DEXAMETHASONE [Concomitant]
     Active Substance: DEXAMETHASONE
     Dosage: UNK
     Route: 065
     Dates: start: 20220110
  21. DEXAMETHASONE [Concomitant]
     Active Substance: DEXAMETHASONE
     Dosage: UNK
     Route: 065
     Dates: start: 20220111, end: 20220112
  22. DEXAMETHASONE [Concomitant]
     Active Substance: DEXAMETHASONE
     Dosage: UNK
     Route: 065
     Dates: start: 20220113, end: 20220114
  23. DEXAMETHASONE [Concomitant]
     Active Substance: DEXAMETHASONE
     Dosage: UNK
     Route: 065
     Dates: start: 20220115, end: 20220323
  24. DEXAMETHASONE [Concomitant]
     Active Substance: DEXAMETHASONE
     Dosage: UNK
     Route: 065
     Dates: start: 20220622
  25. EMEND [Concomitant]
     Active Substance: APREPITANT
     Indication: Product used for unknown indication
     Dosage: UNK
     Route: 065
     Dates: start: 20220621
  26. EMEND [Concomitant]
     Active Substance: APREPITANT
     Dosage: UNK
     Route: 065
     Dates: start: 20220621
  27. LOPERAMIDE HYDROCHLORIDE [Concomitant]
     Active Substance: LOPERAMIDE HYDROCHLORIDE
     Indication: Diarrhoea
     Dosage: ONGOING = CHECKED
     Route: 065
     Dates: start: 20210215
  28. ACETAMINOPHEN [Concomitant]
     Active Substance: ACETAMINOPHEN
     Indication: Product used for unknown indication
     Dosage: 500 MG (ONGOING = CHECKED)
     Route: 065
     Dates: start: 20190701
  29. ALPRAZOLAM [Concomitant]
     Active Substance: ALPRAZOLAM
     Indication: Product used for unknown indication
     Dosage: 0.5 MG (ONGOING = CHECKED)
     Route: 065
     Dates: start: 20190715
  30. NEULASTA [Concomitant]
     Active Substance: PEGFILGRASTIM
     Indication: Product used for unknown indication
     Dosage: ONGOING = CHECKED
     Route: 065
     Dates: start: 20220420
  31. CEOLAT [Concomitant]
     Indication: Product used for unknown indication
     Dosage: 1 G
     Route: 065
     Dates: start: 20190815
  32. SUCRALAN [Concomitant]
     Indication: Product used for unknown indication
     Dosage: 1 G (ONGOING = CHECKED)
     Route: 065
     Dates: start: 20190701
  33. CITALOPRAM [Concomitant]
     Active Substance: CITALOPRAM HYDROBROMIDE
     Indication: Product used for unknown indication
     Dosage: 20 MG, QD (ONGOING = CHECKED)
     Route: 065
     Dates: start: 20190715
  34. HYDROMORPHONE HYDROCHLORIDE [Concomitant]
     Active Substance: HYDROMORPHONE HYDROCHLORIDE
     Indication: Product used for unknown indication
     Dosage: 1.3 MG
     Route: 065
     Dates: start: 20190716
  35. HYDROMORPHONE HYDROCHLORIDE [Concomitant]
     Active Substance: HYDROMORPHONE HYDROCHLORIDE
     Dosage: 2 MG, EVERY 0.5 DAY
     Route: 065
     Dates: start: 20190716, end: 20200927
  36. HYDROMORPHONE HYDROCHLORIDE [Concomitant]
     Active Substance: HYDROMORPHONE HYDROCHLORIDE
     Dosage: 2 MG, EVERY 0.5 DAY, ONGOING = CHECKED
     Route: 065
     Dates: start: 20220207
  37. ASCORBIC ACID\CALCIUM PHOSPHATE\CHOLECALCIFEROL\CITRIC ACID MONOHYDRAT [Concomitant]
     Active Substance: ASCORBIC ACID\CALCIUM PHOSPHATE\CHOLECALCIFEROL\CITRIC ACID MONOHYDRATE
     Indication: Product used for unknown indication
     Dosage: 500 MG
     Route: 065
     Dates: start: 20190717
  38. POLYETHYLENE GLYCOL 4000 [Concomitant]
     Active Substance: POLYETHYLENE GLYCOL 4000
     Indication: Product used for unknown indication
     Dosage: 10 G FREQUENCY 3 DAYS
     Route: 065
     Dates: start: 20190705
  39. LOVENOX [Concomitant]
     Active Substance: ENOXAPARIN SODIUM
     Indication: Product used for unknown indication
     Dosage: 40 MG, QD
     Route: 065
     Dates: start: 20210302, end: 20210305
  40. OLANZAPINE [Concomitant]
     Active Substance: OLANZAPINE
     Indication: Product used for unknown indication
     Dosage: 10 MG
     Route: 065
     Dates: start: 20190904, end: 20200926
  41. OLANZAPINE [Concomitant]
     Active Substance: OLANZAPINE
     Dosage: 10 MG
     Route: 065
     Dates: start: 20190821, end: 20190904
  42. EUTHYROX [Concomitant]
     Active Substance: LEVOTHYROXINE SODIUM
     Indication: Product used for unknown indication
     Dosage: 75 UG, QD
     Route: 065
     Dates: end: 201906
  43. EUTHYROX [Concomitant]
     Active Substance: LEVOTHYROXINE SODIUM
     Dosage: 50 MG, QD
     Route: 065
     Dates: start: 20190703, end: 20200929
  44. EUTHYROX [Concomitant]
     Active Substance: LEVOTHYROXINE SODIUM
     Dosage: 25 UG, QD
     Route: 065
     Dates: start: 20200930, end: 20210108
  45. PANTOPRAZOLE SODIUM [Concomitant]
     Active Substance: PANTOPRAZOLE SODIUM
     Indication: Product used for unknown indication
     Dosage: 40 MG, QD
     Route: 065
     Dates: start: 20190701
  46. PANTOPRAZOLE SODIUM [Concomitant]
     Active Substance: PANTOPRAZOLE SODIUM
     Dosage: 40 MG, QD
     Route: 065
     Dates: start: 20210222, end: 20210302
  47. NEURONTIN [Concomitant]
     Active Substance: GABAPENTIN
     Indication: Product used for unknown indication
     Dosage: 300 MG (EVERY 0.5 DAY)
     Route: 065
     Dates: start: 201908, end: 201908
  48. TRAZODONE HYDROCHLORIDE [Concomitant]
     Active Substance: TRAZODONE HYDROCHLORIDE
     Indication: Product used for unknown indication
     Dosage: 150 MG, QD
     Route: 065
     Dates: start: 20190716, end: 20200926
  49. AMOXICILLIN\CLAVULANATE POTASSIUM [Concomitant]
     Active Substance: AMOXICILLIN\CLAVULANATE POTASSIUM
     Indication: Product used for unknown indication
     Dosage: 875 MG (EVERY 0.5 DAY)
     Route: 065
     Dates: start: 20200527, end: 20200602
  50. ACETAMINOPHEN [Concomitant]
     Active Substance: ACETAMINOPHEN
     Indication: Product used for unknown indication
     Dosage: 1 G
     Route: 065
     Dates: start: 20210302, end: 20210303
  51. VALACYCLOVIR HYDROCHLORIDE [Concomitant]
     Active Substance: VALACYCLOVIR HYDROCHLORIDE
     Indication: Product used for unknown indication
     Dosage: 500 MG, QD
     Route: 065
     Dates: start: 20190716, end: 20191011

REACTIONS (6)
  - Vascular device infection [Recovered/Resolved]
  - Pyrexia [Recovered/Resolved]
  - Intracranial pressure increased [Recovered/Resolved]
  - Iron deficiency anaemia [Recovered/Resolved]
  - Gamma-glutamyltransferase increased [Not Recovered/Not Resolved]
  - Insomnia [Not Recovered/Not Resolved]

NARRATIVE: CASE EVENT DATE: 20211227
